FAERS Safety Report 13299492 (Version 1)
Quarter: 2017Q1

REPORT INFORMATION
  Report Type: Spontaneous
  Country: US (occurrence: US)
  Receive Date: 20170306
  Receipt Date: 20170306
  Transmission Date: 20170428
  Serious: Yes (Other)
  Sender: FDA-Public Use
  Company Number: US-BAYER-2017-038016

PATIENT
  Age: 44 Year
  Sex: Female

DRUGS (5)
  1. NAPROXEN. [Concomitant]
     Active Substance: NAPROXEN
     Dosage: UNK
  2. ALKA-SELTZER ORIGINAL [Suspect]
     Active Substance: ANHYDROUS CITRIC ACID\ASPIRIN\SODIUM BICARBONATE
     Indication: DYSPEPSIA
     Dosage: 2 DF(DISSOLVED IN WATER)
     Route: 048
     Dates: start: 20170224, end: 20170224
  3. ALKA-SELTZER ORIGINAL [Suspect]
     Active Substance: ANHYDROUS CITRIC ACID\ASPIRIN\SODIUM BICARBONATE
     Indication: GASTROINTESTINAL DISORDER
  4. TIZANIDINE. [Concomitant]
     Active Substance: TIZANIDINE
     Indication: DYSPEPSIA
     Dosage: 2 DF(DISSOLVED IN WATER)
     Dates: start: 20170224, end: 20170224
  5. TORADOL [Concomitant]
     Active Substance: KETOROLAC TROMETHAMINE
     Dosage: UNK

REACTIONS (5)
  - Rectal tenesmus [None]
  - Condition aggravated [Unknown]
  - Drug administration error [None]
  - Haemorrhage [Unknown]
  - Labelled drug-drug interaction medication error [None]

NARRATIVE: CASE EVENT DATE: 20170224
